FAERS Safety Report 4659912-6 (Version None)
Quarter: 2005Q2

REPORT INFORMATION
  Report Type: 
  Country: None (occurrence: None)
  Receive Date: 20050419
  Receipt Date: 20041012
  Transmission Date: 20051028
  Serious: Yes (Other)
  Sender: FDA-Public Use
  Company Number: 14854

PATIENT
  Age: 44 Year
  Sex: Female
  Weight: 76.2043 kg

DRUGS (8)
  1. ADRIAMYCIN PFS [Suspect]
     Indication: BREAST CANCER
     Dosage: 104 MG IV EVERY 14 DAYS
     Route: 042
     Dates: start: 20040708
  2. ADRIAMYCIN PFS [Suspect]
     Indication: BREAST CANCER
     Dosage: 104 MG IV EVERY 14 DAYS
     Route: 042
     Dates: start: 20040712
  3. ADRIAMYCIN PFS [Suspect]
     Indication: BREAST CANCER
     Dosage: 104 MG IV EVERY 14 DAYS
     Route: 042
     Dates: start: 20040805
  4. ADRIAMYCIN PFS [Suspect]
     Indication: BREAST CANCER
     Dosage: 104 MG IV EVERY 14 DAYS
     Route: 042
     Dates: start: 20040819
  5. NEULASTA [Concomitant]
  6. ZOMETIN [Concomitant]
  7. ZOFRAN [Concomitant]
  8. DEXAMETHASONE [Concomitant]

REACTIONS (1)
  - LOCALISED INFECTION [None]
